FAERS Safety Report 17119805 (Version 2)
Quarter: 2019Q4

REPORT INFORMATION
  Report Type: Report from Study
  Country: FR (occurrence: FR)
  Receive Date: 20191206
  Receipt Date: 20191219
  Transmission Date: 20200122
  Serious: Yes (Hospitalization, Other)
  Sender: FDA-Public Use
  Company Number: FR-AMGEN-FRACT2019201104

PATIENT
  Age: 63 Year
  Sex: Male
  Weight: 60 kg

DRUGS (9)
  1. IRINOTECAN [Suspect]
     Active Substance: IRINOTECAN
     Indication: COLORECTAL CANCER
     Dosage: 250 MILLIGRAM
     Route: 042
     Dates: start: 20191126
  2. PANITUMUMAB [Suspect]
     Active Substance: PANITUMUMAB
     Indication: COLORECTAL CANCER
     Dosage: 360 MILLIGRAM
     Route: 042
     Dates: start: 20191126
  3. OXALIPLATIN. [Suspect]
     Active Substance: OXALIPLATIN
     Indication: COLORECTAL CANCER
     Dosage: 141 MILLIGRAM
     Route: 042
     Dates: start: 20191126
  4. LEVOFOLINATE DE CALCIUM [Suspect]
     Active Substance: LEVOLEUCOVORIN CALCIUM
     Indication: COLORECTAL CANCER
     Dosage: 663 MILLIGRAM
     Route: 042
     Dates: start: 20191126
  5. TRAMADOL. [Concomitant]
     Active Substance: TRAMADOL
     Indication: ABDOMINAL PAIN
     Dosage: 150 MILLIGRAM
     Route: 048
     Dates: start: 201411
  6. MOVICOL [MACROGOL 4000;POTASSIUM CHLORIDE;SODIUM BICARBONATE;SODIUM CH [Concomitant]
     Indication: ABDOMINAL PAIN
     Dosage: 1 MILLIGRAM
     Route: 048
     Dates: start: 201511
  7. 5 FU [Suspect]
     Active Substance: FLUOROURACIL
     Indication: COLORECTAL CANCER
     Dosage: UNK
     Route: 040
     Dates: start: 20191126
  8. 5 FU [Suspect]
     Active Substance: FLUOROURACIL
     Dosage: UNK
     Route: 041
     Dates: start: 20191126
  9. DOLIPRANE [Concomitant]
     Active Substance: ACETAMINOPHEN
     Indication: ABDOMINAL PAIN
     Dosage: 3 GRAM
     Route: 048
     Dates: start: 201511

REACTIONS (2)
  - Malaise [Not Recovered/Not Resolved]
  - Accidental overdose [Unknown]

NARRATIVE: CASE EVENT DATE: 20191126
